FAERS Safety Report 8233761-4 (Version None)
Quarter: 2012Q1

REPORT INFORMATION
  Report Type: 
  Country: None (occurrence: None)
  Receive Date: 20120326
  Receipt Date: 20120323
  Transmission Date: 20120608
  Serious: Yes (Death)
  Sender: FDA-Public Use
  Company Number: PHFR2011IE04206

PATIENT
  Sex: Male

DRUGS (7)
  1. INDERAL [Concomitant]
     Dosage: 5 MG, BID
  2. CLOZARIL [Suspect]
     Dosage: 175 MG MANE + 300 MG NOCTE
     Dates: start: 20110628
  3. LEXAPRO [Concomitant]
     Dosage: 20 MG, QD
  4. DALMANE [Concomitant]
     Dosage: 30 MG NOCTE
  5. CLOZARIL [Suspect]
     Indication: SCHIZOPHRENIA
     Dates: start: 20100119
  6. MIRTAZAPINE [Concomitant]
     Dosage: 45 MG
  7. CLOZARIL [Suspect]
     Dates: start: 20110121

REACTIONS (2)
  - DEATH [None]
  - MYOCARDIAL INFARCTION [None]
